FAERS Safety Report 8529694-6 (Version None)
Quarter: 2012Q3

REPORT INFORMATION
  Report Type: 
  Country: None (occurrence: None)
  Receive Date: 20120723
  Receipt Date: 20120718
  Transmission Date: 20120928
  Serious: Yes (Death, Hospitalization)
  Sender: FDA-Public Use
  Company Number: US-JNJFOC-20120709904

PATIENT
  Sex: Female
  Weight: 51 kg

DRUGS (1)
  1. DOXIL [Suspect]
     Indication: UTERINE CANCER
     Route: 042
     Dates: start: 20110711, end: 20110823

REACTIONS (4)
  - UTERINE CANCER [None]
  - INTESTINAL OBSTRUCTION [None]
  - NAUSEA [None]
  - OFF LABEL USE [None]
